FAERS Safety Report 5249320-1 (Version None)
Quarter: 2007Q1

REPORT INFORMATION
  Report Type: 
  Country: None (occurrence: None)
  Receive Date: 20070223
  Receipt Date: 20070208
  Transmission Date: 20070707
  Serious: No
  Sender: FDA-Public Use
  Company Number: CNL-125178-NL

PATIENT
  Age: 72 Year
  Sex: Female

DRUGS (8)
  1. MIRTAZAPINE [Suspect]
     Dosage: 15 MG/30 MG/45 MG/30 MG/15 MG
     Dates: start: 20010115, end: 20010119
  2. MIRTAZAPINE [Suspect]
     Dosage: 15 MG/30 MG/45 MG/30 MG/15 MG
     Dates: start: 20010120, end: 20010129
  3. MIRTAZAPINE [Suspect]
     Dosage: 15 MG/30 MG/45 MG/30 MG/15 MG
     Dates: start: 20010130, end: 20010211
  4. MIRTAZAPINE [Suspect]
     Dosage: 15 MG/30 MG/45 MG/30 MG/15 MG
     Dates: start: 20010212, end: 20010215
  5. MIRTAZAPINE [Suspect]
     Dosage: 15 MG/30 MG/45 MG/30 MG/15 MG
     Dates: start: 20010215, end: 20010219
  6. PIPAMPERONE [Concomitant]
  7. VENLAFAXINE HYDROCHLORIDE [Suspect]
     Dosage: 37.5 MG
     Dates: start: 20010201, end: 20010209
  8. DONEPEZIL HCL [Suspect]
     Dosage: 5 MG
     Dates: start: 20010203

REACTIONS (1)
  - SEROTONIN SYNDROME [None]
